FAERS Safety Report 20670848 (Version 1)
Quarter: 2022Q2

REPORT INFORMATION
  Report Type: Spontaneous
  Country: US (occurrence: US)
  Receive Date: 20220404
  Receipt Date: 20220404
  Transmission Date: 20220721
  Serious: No
  Sender: FDA-Public Use
  Company Number: US-PFIZER INC-202100935836

PATIENT
  Age: 61 Year
  Sex: Female
  Weight: 88.45 kg

DRUGS (1)
  1. CHANTIX [Suspect]
     Active Substance: VARENICLINE TARTRATE
     Indication: Smoking cessation therapy
     Dosage: 1 MG, 2X/DAY (1MG, TABLET, BY MOUTH, TWICE A DAY)
     Route: 048
     Dates: start: 2020, end: 2020

REACTIONS (2)
  - Stress [Unknown]
  - Drug ineffective [Unknown]
